FAERS Safety Report 18338870 (Version 1)
Quarter: 2020Q4

REPORT INFORMATION
  Report Type: Spontaneous
  Country: NL (occurrence: NL)
  Receive Date: 20201002
  Receipt Date: 20201002
  Transmission Date: 20210113
  Serious: Yes (Other)
  Sender: FDA-Public Use
  Company Number: NL-MYLANLABS-2020M1082810

PATIENT
  Age: 62 Year
  Sex: Male
  Weight: 98 kg

DRUGS (20)
  1. SIMVASTATIN. [Interacting]
     Active Substance: SIMVASTATIN
     Indication: HYPERCHOLESTEROLAEMIA
     Dosage: 1DD1
     Dates: start: 2010, end: 20200831
  2. CARBOMER [Concomitant]
     Active Substance: CARBOMER
     Dosage: 4 X PER DAG 2 DRUPPEL, CARBOMEER OOGGEL 2MG/G (CARBOMEER 980)
  3. TEMAZEPAM. [Concomitant]
     Active Substance: TEMAZEPAM
     Dosage: 1 X PER DAG 1 STUK
  4. METOCLOPRAMIDE. [Concomitant]
     Active Substance: METOCLOPRAMIDE
     Dosage: 3 X PER DAG 5 MG
  5. ATENOLOL. [Concomitant]
     Active Substance: ATENOLOL
     Dosage: 1 X PER DAG 1 STUK
  6. NADROPARINE [Concomitant]
     Active Substance: NADROPARIN
     Dosage: 1 X PER DAG 1 STUK, IE/ML
  7. VORICONAZOLE. [Suspect]
     Active Substance: VORICONAZOLE
     Indication: BRONCHOPULMONARY ASPERGILLOSIS
     Dosage: 2DD320MG
     Dates: start: 20200828
  8. NIFEDIPINE. [Concomitant]
     Active Substance: NIFEDIPINE
     Dosage: 1 X PER DAG 1 STUK, TABLET RETARD
  9. ZOPICLON [Concomitant]
     Active Substance: ZOPICLONE
     Dosage: 1 X PER DAG 1 STUK, ZONODIG EENTJE EXTRA
  10. SUFENTANIL [Concomitant]
     Active Substance: SUFENTANIL
     Dosage: VV
  11. SALBUTAMOL [Concomitant]
     Active Substance: ALBUTEROL
     Dosage: 4 X PER DAG 1 DOSIS, 100 UG/DO
  12. PAROXETINE. [Concomitant]
     Active Substance: PAROXETINE
     Dosage: 1 X PER DAG 3 STUKS
  13. ORABASE                            /00016001/ [Concomitant]
     Dosage: 4 X PER DAG 0,5 GRAM, SDD PASTE
  14. ACETYLSALICYLZUUR [Concomitant]
     Active Substance: ASPIRIN
     Dosage: 1 X PER DAG 1 STUK
  15. PANTOPRAZOL                        /01263201/ [Concomitant]
     Active Substance: PANTOPRAZOLE
     Dosage: 1 X PER DAG 40 MG, INJECTION POWDER
  16. MAGNESIUM HYDROXIDE. [Concomitant]
     Active Substance: MAGNESIUM HYDROXIDE
     Dosage: ZN 3 X PER DAG 2 STUK, KAUWTABLET
  17. OXAZEPAM. [Concomitant]
     Active Substance: OXAZEPAM
     Dosage: 3 X PER DAG 5 MG
  18. INSULINE ASPARTE [Concomitant]
     Active Substance: INSULIN ASPART
     Dosage: VV: START POMP OP SEH 4 EENHEDEN, INSULINE ASPART INJVLST 100E/ML
  19. NORADRENALINE                      /00127501/ [Concomitant]
     Active Substance: NOREPINEPHRINE
     Dosage: VV
  20. IPRATROPIUM [Concomitant]
     Active Substance: IPRATROPIUM
     Dosage: 4 X PER DAG 1 DOSIS, AEROSOL 20UG/DO

REACTIONS (3)
  - Rhabdomyolysis [Recovering/Resolving]
  - Drug interaction [Unknown]
  - Acute kidney injury [Recovering/Resolving]

NARRATIVE: CASE EVENT DATE: 20200831
